FAERS Safety Report 9252306 (Version 1)
Quarter: 2013Q1

REPORT INFORMATION
  Report Type: Spontaneous
  Country: US (occurrence: None)
  Receive Date: 20130305
  Receipt Date: 20130305
  Transmission Date: 20140127
  Serious: Yes (Other)
  Sender: FDA-Public Use
  Company Number: 163-21880-12083100

PATIENT
  Age: 69 Year
  Sex: Female
  Weight: 83.92 kg

DRUGS (13)
  1. REVLIMID [Suspect]
     Indication: PLASMA CELL MYELOMA
     Dosage: 14 IN 21 D
     Route: 048
     Dates: start: 20120712
  2. ASPIRIN (ACETYLSALICYLIC ACID) [Concomitant]
  3. CALCIUM (CALCIUM) [Concomitant]
  4. CO Q 10 (UBIDECARENONE) [Concomitant]
  5. GLUCOSAMINE CHONDROITIN (GLUCOSAMINE W/ CHONDROTITN SULFATE) [Concomitant]
  6. MAXIDEX (MAXIDEX) [Concomitant]
  7. NORVASC (AMLODIPINE BESILATE) [Concomitant]
  8. OMEGA 3 FISH OIL (FISH OIL) [Concomitant]
  9. TYLENOL (PARACETAMOL) [Concomitant]
  10. VITAMIN B12 (CYANOCOBALAMIN) [Concomitant]
  11. VITAMIN C [Concomitant]
  12. VITAMIN D (ERGOCALCIFEROL) [Concomitant]
  13. VITAMIN E (TOCOPHEROL) [Concomitant]

REACTIONS (1)
  - Local swelling [None]
